FAERS Safety Report 5732894-1 (Version None)
Quarter: 2008Q2

REPORT INFORMATION
  Report Type: 
  Country: None (occurrence: None)
  Receive Date: 20080509
  Receipt Date: 20080215
  Transmission Date: 20081010
  Serious: No
  Sender: FDA-Public Use
  Company Number: A0709979A

PATIENT
  Age: 70 Year
  Sex: Female

DRUGS (9)
  1. COREG CR [Suspect]
     Indication: MITRAL VALVE REPLACEMENT
     Dosage: 80MG PER DAY
     Route: 048
  2. COREG [Suspect]
     Indication: MITRAL VALVE REPLACEMENT
     Route: 048
  3. WARFARIN SODIUM [Concomitant]
  4. FUROSEMIDE [Concomitant]
  5. LOVASTATIN [Concomitant]
  6. ASPIRIN [Concomitant]
  7. LISINOPRIL [Concomitant]
  8. ARIMIDEX [Concomitant]
  9. CALCIUM [Concomitant]

REACTIONS (1)
  - WEIGHT INCREASED [None]
